FAERS Safety Report 10211085 (Version 1)
Quarter: 2014Q2

REPORT INFORMATION
  Report Type: Spontaneous
  Country: US (occurrence: None)
  Receive Date: 20140530
  Receipt Date: 20140530
  Transmission Date: 20141212
  Serious: No
  Sender: FDA-Public Use
  Company Number: None

PATIENT
  Age: 66 Year
  Sex: Male
  Weight: 82.7 kg

DRUGS (1)
  1. MORPHINE [Suspect]
     Indication: PAIN
     Dosage: 1MG/0.5ML MG, QID, IV?
     Route: 042
     Dates: start: 20140416, end: 20140503

REACTIONS (4)
  - Respiratory depression [None]
  - Mental status changes [None]
  - Confusional state [None]
  - Lethargy [None]
